FAERS Safety Report 9793864 (Version 2)
Quarter: 2014Q1

REPORT INFORMATION
  Report Type: Report from Study
  Country: FR (occurrence: FR)
  Receive Date: 20140102
  Receipt Date: 20140102
  Transmission Date: 20141002
  Serious: Yes (Hospitalization, Other)
  Sender: FDA-Public Use
  Company Number: FR-BRISTOL-MYERS SQUIBB COMPANY-19828268

PATIENT
  Age: 54 Year
  Sex: Female
  Weight: 55 kg

DRUGS (14)
  1. PACLITAXEL [Suspect]
     Indication: NEOPLASM
     Dosage: LAST DOSE PRIOR TO SAE : 07OCT2013?80MG/M2
     Route: 042
     Dates: start: 20130909
  2. OXYCODONE [Concomitant]
     Dates: start: 201210
  3. DIPROSONE [Concomitant]
     Dates: start: 20131007
  4. OLMESARTAN MEDOXOMIL [Concomitant]
     Dosage: 1 DF : 1 TABLET
     Dates: start: 2010
  5. AMLODIPINE BESYLATE [Concomitant]
     Dosage: TABLET
  6. DOLIPRANE [Concomitant]
     Dates: start: 2012
  7. NIQUITIN [Concomitant]
  8. LYRICA [Concomitant]
     Dates: start: 20130929
  9. DUROGESIC [Concomitant]
  10. FILGRASTIM [Concomitant]
     Dosage: 07OCT2013 - ONGOING
     Dates: start: 20131015
  11. NEORECORMON [Concomitant]
     Dosage: 08SEP2013- ONG
     Dates: start: 201310
  12. FLUCONAZOLE [Concomitant]
     Dates: start: 20130929
  13. VITAMIN E [Concomitant]
     Dates: start: 2009
  14. FERINJECT [Concomitant]
     Dates: start: 20130916

REACTIONS (2)
  - Skin disorder [Recovered/Resolved]
  - Systemic lupus erythematosus [Not Recovered/Not Resolved]
